FAERS Safety Report 8150957 (Version 4)
Quarter: 2013Q1

REPORT INFORMATION
  Report Type: Spontaneous
  Country: US (occurrence: US)
  Receive Date: 20110922
  Receipt Date: 20130301
  Transmission Date: 20140127
  Serious: No
  Sender: FDA-Public Use
  Company Number: US-ASTRAZENECA-2011SE05145

PATIENT
  Age: 38 Year
  Sex: Female
  Weight: 97.5 kg

DRUGS (2)
  1. SEROQUEL [Suspect]
     Route: 048
  2. ZOMIG [Suspect]
     Route: 048

REACTIONS (8)
  - Activities of daily living impaired [Unknown]
  - Malaise [Unknown]
  - Nasopharyngitis [Unknown]
  - Aphonia [Unknown]
  - Migraine [Unknown]
  - Cough [Unknown]
  - Asthma [Unknown]
  - Intentional drug misuse [Unknown]
